FAERS Safety Report 18225355 (Version 2)
Quarter: 2021Q1

REPORT INFORMATION
  Report Type: Spontaneous
  Country: US (occurrence: US)
  Receive Date: 20200903
  Receipt Date: 20210325
  Transmission Date: 20210419
  Serious: Yes (Other)
  Sender: FDA-Public Use
  Company Number: US-SA-2020SA234190

PATIENT
  Age: 51 Year
  Sex: Male

DRUGS (1)
  1. ZANTAC [Suspect]
     Active Substance: RANITIDINE HYDROCHLORIDE
     Indication: DYSPEPSIA
     Dosage: 150 MG, QD
     Dates: start: 201610, end: 201909

REACTIONS (2)
  - Colorectal cancer stage III [Recovering/Resolving]
  - Thyroid cancer stage III [Recovering/Resolving]

NARRATIVE: CASE EVENT DATE: 20191001
